FAERS Safety Report 6285890-2 (Version None)
Quarter: 2009Q3

REPORT INFORMATION
  Report Type: 
  Country: None (occurrence: None)
  Receive Date: 20090728
  Receipt Date: 20090720
  Transmission Date: 20100115
  Serious: Yes (Hospitalization)
  Sender: FDA-Public Use
  Company Number: US-ELI_LILLY_AND_COMPANY-US200907004202

PATIENT
  Sex: Female
  Weight: 81.633 kg

DRUGS (4)
  1. BYETTA [Suspect]
     Indication: TYPE 2 DIABETES MELLITUS
     Dosage: 5 UG, 2/D
     Route: 058
     Dates: start: 20080101, end: 20080101
  2. BYETTA [Suspect]
     Dosage: 10 UG, 2/D
     Route: 058
     Dates: start: 20080101
  3. GLUCOPHAGE [Concomitant]
     Indication: TYPE 2 DIABETES MELLITUS
  4. ACTOS [Concomitant]
     Indication: TYPE 2 DIABETES MELLITUS

REACTIONS (6)
  - BACK PAIN [None]
  - BLOOD GLUCOSE INCREASED [None]
  - CONSTIPATION [None]
  - FUNGAL INFECTION [None]
  - INTERVERTEBRAL DISC PROTRUSION [None]
  - PRODUCT QUALITY ISSUE [None]
